FAERS Safety Report 4805381-2 (Version None)
Quarter: 2005Q4

REPORT INFORMATION
  Report Type: 
  Country: None (occurrence: None)
  Receive Date: 20051017
  Receipt Date: 20051009
  Transmission Date: 20060501
  Serious: Yes (Death)
  Sender: FDA-Public Use
  Company Number: USA-2002-0001078

PATIENT
  Age: 41 Year
  Sex: Male
  Weight: 88 kg

DRUGS (5)
  1. OXYCONTIN [Suspect]
     Dosage: MG
  2. HYROCODONE BITARTRATE (SIMILAR TO IND 59,175) HYDROCODONE BITARTRATE) [Suspect]
  3. CARISOPRODOL [Suspect]
     Dosage: MG
  4. ALPRAZOLAM [Suspect]
     Dosage: MG
  5. MEPROBAMATE [Suspect]
     Dosage: MG

REACTIONS (5)
  - ALCOHOL USE [None]
  - ARTERIOSCLEROSIS [None]
  - EMPHYSEMA [None]
  - HYPERTENSION [None]
  - MULTIPLE DRUG OVERDOSE ACCIDENTAL [None]
